FAERS Safety Report 8199988-5 (Version None)
Quarter: 2012Q1

REPORT INFORMATION
  Report Type: 
  Country: None (occurrence: None)
  Receive Date: 20120312
  Receipt Date: 20120308
  Transmission Date: 20120608
  Serious: No
  Sender: FDA-Public Use
  Company Number: US-PFIZER INC-2012062403

PATIENT
  Sex: Male
  Weight: 86.168 kg

DRUGS (2)
  1. ADVIL MIGRAINE LIQUI-GELS [Suspect]
     Indication: MIGRAINE
     Dosage: 200 MG, DAILY
     Route: 048
     Dates: start: 20120307, end: 20120307
  2. NAPROXEN (ALEVE) [Concomitant]
     Dosage: 20 MG, WEEKLY

REACTIONS (2)
  - MIGRAINE [None]
  - ABDOMINAL DISCOMFORT [None]
